FAERS Safety Report 6239856-9 (Version None)
Quarter: 2009Q2

REPORT INFORMATION
  Report Type: 
  Country: None (occurrence: None)
  Receive Date: 20090623
  Receipt Date: 20090615
  Transmission Date: 20091009
  Serious: Yes (Hospitalization)
  Sender: FDA-Public Use
  Company Number: US-BIOGENIDEC-2009BI017062

PATIENT
  Age: 57 Year
  Sex: Male

DRUGS (2)
  1. AVONEX [Suspect]
     Indication: MULTIPLE SCLEROSIS
     Route: 030
     Dates: start: 20090120
  2. AVONEX [Suspect]
     Route: 030
     Dates: start: 20010404, end: 20080827

REACTIONS (2)
  - APPENDICITIS [None]
  - PNEUMONIA [None]
